FAERS Safety Report 7048842-0 (Version None)
Quarter: 2010Q4

REPORT INFORMATION
  Report Type: 
  Country: None (occurrence: None)
  Receive Date: 20101018
  Receipt Date: 20101004
  Transmission Date: 20110411
  Serious: Yes (Other)
  Sender: FDA-Public Use
  Company Number: US-CELGENEUS-163-21880-10100432

PATIENT
  Sex: Female

DRUGS (3)
  1. REVLIMID [Suspect]
     Indication: MULTIPLE MYELOMA
     Route: 048
     Dates: start: 20100901
  2. REVLIMID [Suspect]
     Route: 048
     Dates: start: 20100701
  3. REVLIMID [Suspect]
     Route: 048
     Dates: start: 20090401

REACTIONS (1)
  - CARDIAC FIBRILLATION [None]
